FAERS Safety Report 4599471-X (Version None)
Quarter: 2005Q1

REPORT INFORMATION
  Report Type: 
  Country: None (occurrence: None)
  Receive Date: 20050303
  Receipt Date: 20050211
  Transmission Date: 20050727
  Serious: Yes (Death, Other)
  Sender: FDA-Public Use
  Company Number: US_001052558

PATIENT
  Age: 48 Year
  Sex: Female

DRUGS (6)
  1. HUMALOG [Suspect]
     Indication: DIABETES MELLITUS
  2. HUMULIN L [Suspect]
     Indication: DIABETES MELLITUS
     Dates: start: 19980101
  3. HUMULIN R [Suspect]
     Indication: DIABETES MELLITUS
     Dates: start: 19980101
  4. LENTE ILETIN (BEEF-PORK) INSULIN ZINC [Suspect]
     Indication: DIABETES MELLITUS
     Dates: end: 19980101
  5. REGULAR ILETIN II [Suspect]
     Indication: DIABETES MELLITUS
     Dates: end: 19980101
  6. LANTUS [Concomitant]

REACTIONS (5)
  - HYPOGLYCAEMIA UNAWARENESS [None]
  - ROAD TRAFFIC ACCIDENT [None]
  - STOMACH DISCOMFORT [None]
  - VISUAL DISTURBANCE [None]
  - WEIGHT INCREASED [None]
